FAERS Safety Report 20885886 (Version 1)
Quarter: 2022Q2

REPORT INFORMATION
  Report Type: Spontaneous
  Country: CN (occurrence: CN)
  Receive Date: 20220527
  Receipt Date: 20220527
  Transmission Date: 20220721
  Serious: Yes (Other)
  Sender: FDA-Public Use
  Company Number: CN-009507513-2205CHN006751

PATIENT
  Age: 67 Year
  Sex: Male
  Weight: 58 kg

DRUGS (2)
  1. CILASTATIN SODIUM\IMIPENEM [Suspect]
     Active Substance: CILASTATIN SODIUM\IMIPENEM
     Indication: Abdominal infection
     Dosage: 0.5 GRAMS Q8H
     Route: 041
     Dates: start: 20220415, end: 20220422
  2. SODIUM CHLORIDE [Concomitant]
     Active Substance: SODIUM CHLORIDE
     Indication: Medication dilution
     Dosage: 100 ML Q8H
     Route: 041
     Dates: start: 20220415, end: 20220422

REACTIONS (7)
  - Liver injury [Recovering/Resolving]
  - Alanine aminotransferase increased [Recovering/Resolving]
  - Aspartate aminotransferase increased [Recovering/Resolving]
  - Blood bilirubin increased [Not Recovered/Not Resolved]
  - Blood alkaline phosphatase increased [Recovering/Resolving]
  - Bilirubin conjugated increased [Not Recovered/Not Resolved]
  - Gamma-glutamyltransferase increased [Recovering/Resolving]

NARRATIVE: CASE EVENT DATE: 20220421
